FAERS Safety Report 9727072 (Version 2)
Quarter: 2013Q4

REPORT INFORMATION
  Report Type: Spontaneous
  Country: AU (occurrence: AU)
  Receive Date: 20131203
  Receipt Date: 20131205
  Transmission Date: 20140711
  Serious: Yes (Other)
  Sender: FDA-Public Use
  Company Number: AU-PFIZER INC-2013342357

PATIENT
  Age: 2 Decade
  Sex: Male

DRUGS (2)
  1. EFEXOR XR [Suspect]
     Indication: DEPRESSION
     Dosage: 75 MG, UNK
     Dates: start: 2005
  2. EFEXOR XR [Suspect]
     Indication: ANXIETY
     Dosage: 300 MG, UNK
     Dates: start: 2010

REACTIONS (12)
  - Suicide attempt [Unknown]
  - Intentional self-injury [Unknown]
  - Major depression [Unknown]
  - Depression [Unknown]
  - Aggression [Unknown]
  - Anger [Unknown]
  - Anxiety [Unknown]
  - Feeling abnormal [Unknown]
  - Amnesia [Unknown]
  - Disturbance in attention [Unknown]
  - Mood altered [Unknown]
  - Thinking abnormal [Unknown]
